FAERS Safety Report 5412142-2 (Version None)
Quarter: 2007Q3

REPORT INFORMATION
  Report Type: 
  Country: None (occurrence: None)
  Receive Date: 20070713
  Receipt Date: 20070510
  Transmission Date: 20080115
  Serious: No
  Sender: FDA-Public Use
  Company Number: 2007SP001747

PATIENT
  Age: 49 Year
  Sex: Female
  Weight: 78.4723 kg

DRUGS (11)
  1. LUNESTA [Suspect]
     Indication: RAPID EYE MOVEMENTS SLEEP ABNORMAL
     Dosage: 2 MG ORAL ; 3 MG ORAL
     Route: 048
     Dates: start: 20050101, end: 20060101
  2. LUNESTA [Suspect]
     Indication: RAPID EYE MOVEMENTS SLEEP ABNORMAL
     Dosage: 2 MG ORAL ; 3 MG ORAL
     Route: 048
     Dates: start: 20060101
  3. CYMBALTA [Concomitant]
  4. ADDERALL 10 [Concomitant]
  5. OXCARBAZEPINE [Concomitant]
  6. MICARDIS [Concomitant]
  7. DIPHENHYDRAMINE HCL [Concomitant]
  8. ZYRTEC [Concomitant]
  9. ALLEGRA [Concomitant]
  10. LUPRON [Concomitant]
  11. ANTIBIOTICS [Concomitant]

REACTIONS (11)
  - CONJUNCTIVITIS [None]
  - EYE IRRITATION [None]
  - FUNGAL INFECTION [None]
  - HYPOAESTHESIA ORAL [None]
  - PAIN [None]
  - RASH [None]
  - SINUSITIS [None]
  - SWOLLEN TONGUE [None]
  - THINKING ABNORMAL [None]
  - TINNITUS [None]
  - TONGUE DISORDER [None]
